FAERS Safety Report 9768129 (Version 1)
Quarter: 2013Q4

REPORT INFORMATION
  Report Type: Spontaneous
  Country: US (occurrence: US)
  Receive Date: 20131217
  Receipt Date: 20131217
  Transmission Date: 20140711
  Serious: Yes (Hospitalization)
  Sender: FDA-Public Use
  Company Number: US-GLAXOSMITHKLINE-A1052865A

PATIENT
  Age: 57 Year
  Sex: Female

DRUGS (4)
  1. ADVAIR [Suspect]
     Indication: CHRONIC OBSTRUCTIVE PULMONARY DISEASE
     Dosage: 1PUFF TWICE PER DAY
     Route: 055
     Dates: start: 2010
  2. COMBIVENT [Concomitant]
  3. ANTIBIOTICS [Concomitant]
  4. PREDNISONE [Concomitant]

REACTIONS (5)
  - Pneumonia streptococcal [Recovering/Resolving]
  - Non-cardiac chest pain [Recovering/Resolving]
  - Sepsis [Recovering/Resolving]
  - Hypoxia [Recovering/Resolving]
  - Dyspnoea [Recovering/Resolving]
